FAERS Safety Report 10662789 (Version 1)
Quarter: 2014Q4

REPORT INFORMATION
  Report Type: Report from Study
  Country: CA (occurrence: CA)
  Receive Date: 20141218
  Receipt Date: 20141218
  Transmission Date: 20150529
  Serious: Yes (Hospitalization, Other)
  Sender: FDA-Public Use
  Company Number: CA-AMGEN-CANSL2014097824

PATIENT
  Age: 81 Year
  Sex: Female

DRUGS (1)
  1. PROLIA [Suspect]
     Active Substance: DENOSUMAB
     Indication: OSTEOPOROSIS POSTMENOPAUSAL
     Dosage: 60 MG, Q6MO
     Route: 058
     Dates: start: 2013

REACTIONS (3)
  - Haematochezia [Recovered/Resolved]
  - Heart valve replacement [Recovered/Resolved]
  - Large intestine polyp [Recovered/Resolved]

NARRATIVE: CASE EVENT DATE: 2014
